FAERS Safety Report 6065379-6 (Version None)
Quarter: 2009Q1

REPORT INFORMATION
  Report Type: 
  Country: None (occurrence: None)
  Receive Date: 20090204
  Receipt Date: 20090127
  Transmission Date: 20090719
  Serious: Yes (Other)
  Sender: FDA-Public Use
  Company Number: NL-PFIZER INC-2008153197

PATIENT

DRUGS (6)
  1. XALATAN [Suspect]
     Indication: GLAUCOMA
     Dosage: 1 GTT, 1X/DAY
     Route: 047
     Dates: start: 19980101
  2. BETASERC [Concomitant]
     Dosage: UNK
  3. TAMBOCOR [Concomitant]
     Dosage: UNK
  4. COAPROVEL [Concomitant]
     Dosage: UNK
  5. CINNARIZINE [Concomitant]
     Dosage: UNK
  6. NAPROXEN SODIUM [Concomitant]
     Dosage: UNK

REACTIONS (1)
  - CATARACT [None]
